FAERS Safety Report 9720771 (Version 2)
Quarter: 2013Q4

REPORT INFORMATION
  Report Type: Report from Study
  Country: AU (occurrence: AU)
  Receive Date: 20131129
  Receipt Date: 20131130
  Transmission Date: 20140711
  Serious: Yes (Death)
  Sender: FDA-Public Use
  Company Number: PHHY2013AU137783

PATIENT
  Age: 38 Year
  Sex: Male

DRUGS (1)
  1. CLOZARIL [Suspect]
     Dosage: 500 MG, UNK
     Dates: start: 20040201

REACTIONS (3)
  - Death [Fatal]
  - White blood cell count increased [Unknown]
  - Neutrophil count increased [Unknown]
